FAERS Safety Report 7009146-5 (Version None)
Quarter: 2010Q3

REPORT INFORMATION
  Report Type: 
  Country: None (occurrence: None)
  Receive Date: 20100923
  Receipt Date: 20100914
  Transmission Date: 20110219
  Serious: No
  Sender: FDA-Public Use
  Company Number: US-JNJFOC-20100904875

PATIENT
  Sex: Female
  Weight: 54.43 kg

DRUGS (5)
  1. FENTANYL CITRATE [Suspect]
     Indication: DYSTONIA
     Route: 062
  2. LEVOTHYROXINE SODIUM [Concomitant]
     Indication: HYPOTHYROIDISM
     Route: 048
  3. COMPAZINE [Concomitant]
     Indication: MIGRAINE
     Route: 048
  4. IMITREX [Concomitant]
     Indication: MIGRAINE
     Route: 048
  5. ACIPHEX [Concomitant]
     Indication: GASTROOESOPHAGEAL REFLUX DISEASE
     Route: 048

REACTIONS (11)
  - ABNORMAL LOSS OF WEIGHT [None]
  - DEHYDRATION [None]
  - FEELING ABNORMAL [None]
  - FEELING COLD [None]
  - HOT FLUSH [None]
  - MEMORY IMPAIRMENT [None]
  - PRODUCT ADHESION ISSUE [None]
  - PRODUCT QUALITY ISSUE [None]
  - TONGUE DISORDER [None]
  - WITHDRAWAL SYNDROME [None]
  - WRONG TECHNIQUE IN DRUG USAGE PROCESS [None]
